FAERS Safety Report 19934100 (Version 3)
Quarter: 2022Q1

REPORT INFORMATION
  Report Type: Report from Study
  Country: KR (occurrence: KR)
  Receive Date: 20211008
  Receipt Date: 20220121
  Transmission Date: 20220423
  Serious: Yes (Hospitalization, Other)
  Sender: FDA-Public Use
  Company Number: KR-AMGEN-KORNI2021152608

PATIENT
  Age: 57 Year
  Sex: Male
  Weight: 60.3 kg

DRUGS (19)
  1. CARFILZOMIB [Suspect]
     Active Substance: CARFILZOMIB
     Indication: Plasma cell myeloma
     Dosage: 45 MILLIGRAM
     Route: 042
     Dates: start: 20201208
  2. LENALIDOMIDE [Suspect]
     Active Substance: LENALIDOMIDE
     Indication: Plasma cell myeloma
     Dosage: 105 MILLIGRAM
     Route: 065
     Dates: start: 20201208, end: 20210125
  3. DEXAMETHASONE [Concomitant]
     Active Substance: DEXAMETHASONE
     Indication: Plasma cell myeloma
     Dosage: 20-40 MILLIGRAM
     Dates: start: 20201222
  4. LASIX [Concomitant]
     Active Substance: FUROSEMIDE
     Dosage: 10 MILLIGRAM
     Dates: start: 20201222, end: 20210203
  5. ASPIRIN [Concomitant]
     Active Substance: ASPIRIN
     Dosage: 100 MILLIGRAM
     Dates: start: 20200919
  6. LEFEXIN [Concomitant]
     Dosage: 100 MILLIGRAM
     Dates: start: 20200903
  7. VACRAX [ACICLOVIR] [Concomitant]
     Dosage: 200 MILLIGRAM
     Dates: start: 20200728
  8. FLUCOZOLE [Concomitant]
     Dosage: 100 MILLIGRAM
     Dates: start: 20200728
  9. DULOXTA [Concomitant]
     Dosage: 60 MILLIGRAM
     Dates: start: 20201007
  10. NEWRABELL [Concomitant]
     Dosage: 10 MILLIGRAM
     Dates: start: 20200903, end: 20210301
  11. GASPIRAN [Concomitant]
     Dosage: 5 MILLIGRAM
     Dates: start: 20200903
  12. MAGNESIUM OXIDE [Concomitant]
     Active Substance: MAGNESIUM OXIDE
     Dosage: 250-500 MILLIGRAM
     Dates: start: 20201215
  13. NALOXONE HYDROCHLORIDE\OXYCODONE HYDROCHLORIDE [Concomitant]
     Active Substance: NALOXONE HYDROCHLORIDE\OXYCODONE HYDROCHLORIDE
     Dosage: 30-40 MILLIGRAM
     Dates: start: 20201021
  14. LACTULOSE [Concomitant]
     Active Substance: LACTULOSE
     Dosage: 15 MILLIGRAM
     Dates: start: 20201222
  15. LECTACIN [Concomitant]
     Dosage: 500 MILLIGRAM
     Dates: start: 20210111, end: 20210120
  16. CYMBALTA [Concomitant]
     Active Substance: DULOXETINE HYDROCHLORIDE
     Dosage: 60 MILLIGRAM
     Dates: start: 20210111
  17. MOSAPRIDE CITRATE [Concomitant]
     Active Substance: MOSAPRIDE CITRATE
     Dosage: 5 MILLIGRAM
     Dates: start: 20210111, end: 20210120
  18. RABED [Concomitant]
     Dosage: 10 MILLIGRAM
     Dates: start: 20210111, end: 20210120
  19. LIDOCAINE [Concomitant]
     Active Substance: LIDOCAINE
     Dosage: 400 MILLIGRA
     Dates: start: 20210112, end: 20210112

REACTIONS (3)
  - Pancytopenia [Recovered/Resolved]
  - End stage renal disease [Recovered/Resolved]
  - Hyperkalaemia [Recovered/Resolved]

NARRATIVE: CASE EVENT DATE: 20210113
